FAERS Safety Report 25549204 (Version 1)
Quarter: 2025Q3

REPORT INFORMATION
  Report Type: Spontaneous
  Country: US (occurrence: US)
  Receive Date: 20250714
  Receipt Date: 20250714
  Transmission Date: 20251021
  Serious: Yes (Other)
  Sender: ASTELLAS
  Company Number: US-ASTELLAS-2025-AER-004005

PATIENT
  Age: 78 Year
  Sex: Male

DRUGS (2)
  1. MYRBETRIQ [Suspect]
     Active Substance: MIRABEGRON
     Indication: Hypertonic bladder
     Route: 065
  2. MYRBETRIQ [Suspect]
     Active Substance: MIRABEGRON
     Dosage: 50 MG TABLET SPLIT INFO HALF
     Route: 065

REACTIONS (4)
  - Urinary retention [Recovering/Resolving]
  - Drug intolerance [Unknown]
  - Wrong technique in product usage process [Unknown]
  - Paternal exposure during pregnancy [Unknown]
